FAERS Safety Report 20491253 (Version 1)
Quarter: 2022Q1

REPORT INFORMATION
  Report Type: Spontaneous
  Country: ES (occurrence: ES)
  Receive Date: 20220218
  Receipt Date: 20220218
  Transmission Date: 20220423
  Serious: Yes (Other)
  Sender: FDA-Public Use
  Company Number: None

PATIENT
  Age: 84 Year
  Sex: Male
  Weight: 82 kg

DRUGS (8)
  1. METFORMIN HYDROCHLORIDE\VILDAGLIPTIN [Suspect]
     Active Substance: METFORMIN HYDROCHLORIDE\VILDAGLIPTIN
     Indication: Diabetes mellitus
     Dosage: 1.0 UNK (1.0 COMP DE) 60 TAB
     Route: 048
     Dates: start: 20110801
  2. ZOLPIDEM TARTRATE [Suspect]
     Active Substance: ZOLPIDEM TARTRATE
     Indication: Product used for unknown indication
     Dosage: 5 MG (5.0 MG C/24 H NOC) EFG 30 TAB.
     Route: 048
     Dates: start: 20190513
  3. AMLODIPINE [Concomitant]
     Active Substance: AMLODIPINE BESYLATE
     Indication: Essential hypertension
     Dosage: 5 MG (5.0 MG D-CE)EFG 30 TAB.
     Route: 048
     Dates: start: 20101230
  4. NAPROXENO RATIOPHARM [Concomitant]
     Indication: Product used for unknown indication
     Dosage: UNK (500.0 MG D-CE)EFG 40 TAB
     Route: 048
     Dates: start: 20211103
  5. ATARAX [Concomitant]
     Active Substance: HYDROXYZINE HYDROCHLORIDE
     Indication: Urticaria
     Dosage: 25 MG (25.0 MG A-CE ) 50 TAB
     Route: 048
     Dates: start: 20181119
  6. PAROXETINE HYDROCHLORIDE [Concomitant]
     Active Substance: PAROXETINE HYDROCHLORIDE
     Indication: Product used for unknown indication
     Dosage: 20 MG (20.0 MG DE) EFG 56 TAB
     Route: 048
     Dates: start: 20180407
  7. ATENOLOL CINFA [Concomitant]
     Indication: Essential hypertension
     Dosage: 100 MG (100.0 MG DE)EFG 56 TAB
     Route: 048
     Dates: start: 20101230
  8. FLUTICASONE FUROATE [Concomitant]
     Active Substance: FLUTICASONE FUROATE
     Indication: Product used for unknown indication
     Dosage: 55 UNK (55.0 MCG C/24 H) 1 BOTTLE OF 120 SPRAYS
     Route: 045
     Dates: start: 20150602

REACTIONS (2)
  - Flatulence [Recovered/Resolved]
  - Intestinal obstruction [Recovered/Resolved]

NARRATIVE: CASE EVENT DATE: 20220128
